FAERS Safety Report 9850696 (Version 1)
Quarter: 2014Q1

REPORT INFORMATION
  Report Type: Spontaneous
  Country: JP (occurrence: JP)
  Receive Date: 20140128
  Receipt Date: 20140128
  Transmission Date: 20141002
  Serious: Yes (Other)
  Sender: FDA-Public Use
  Company Number: PHHY2014JP008098

PATIENT
  Age: 31 Month
  Sex: Male

DRUGS (2)
  1. ERYTHROMYCIN [Suspect]
     Indication: RESPIRATORY TRACT INFECTION
     Dosage: 10 MG/KG, PER DAY
  2. ACETYLSALICYLIC ACID [Suspect]

REACTIONS (3)
  - Anaemia [Unknown]
  - Clostridium difficile colitis [Unknown]
  - Diarrhoea haemorrhagic [Unknown]
